FAERS Safety Report 9769313 (Version 1)
Quarter: 2013Q4

REPORT INFORMATION
  Report Type: Spontaneous
  Country: US (occurrence: None)
  Receive Date: 20131217
  Receipt Date: 20131217
  Transmission Date: 20140711
  Serious: Yes (Other)
  Sender: FDA-Public Use
  Company Number: None

PATIENT
  Sex: Female

DRUGS (1)
  1. MIRENA [Suspect]
     Indication: CONTRACEPTION
     Dates: start: 201104

REACTIONS (10)
  - Diplopia [None]
  - Dizziness [None]
  - Pyrexia [None]
  - Abdominal pain [None]
  - Vomiting [None]
  - Fatigue [None]
  - Depression [None]
  - Anxiety [None]
  - Suicidal ideation [None]
  - Device dislocation [None]
